FAERS Safety Report 16234314 (Version 1)
Quarter: 2019Q2

REPORT INFORMATION
  Report Type: Spontaneous
  Country: FR (occurrence: FR)
  Receive Date: 20190424
  Receipt Date: 20190424
  Transmission Date: 20190711
  Serious: Yes (Hospitalization, Other)
  Sender: FDA-Public Use
  Company Number: FR-MYLANLABS-2019M1037025

PATIENT
  Age: 39 Year
  Sex: Female

DRUGS (5)
  1. PARACETAMOL [Suspect]
     Active Substance: ACETAMINOPHEN
     Indication: PRODUCT USED FOR UNKNOWN INDICATION
     Dosage: 4 GRAM, TOTAL
     Route: 048
     Dates: start: 20180702, end: 20180702
  2. PAROXETINE. [Suspect]
     Active Substance: PAROXETINE
     Indication: PRODUCT USED FOR UNKNOWN INDICATION
     Dosage: 7 DOSAGE FORM, QD
     Route: 048
     Dates: start: 20180702, end: 20180702
  3. KETOPROFEN. [Suspect]
     Active Substance: KETOPROFEN
     Indication: PRODUCT USED FOR UNKNOWN INDICATION
     Dosage: 5000 MILLIGRAM, QD
     Route: 048
     Dates: start: 20180702, end: 20180702
  4. DAFALGAN CODEINE [Suspect]
     Active Substance: ACETAMINOPHEN\CODEINE PHOSPHATE
     Indication: PRODUCT USED FOR UNKNOWN INDICATION
     Dosage: 16 DOSAGE FORM, QD
     Route: 048
     Dates: start: 20180702, end: 20180702
  5. ALPRAZOLAM. [Suspect]
     Active Substance: ALPRAZOLAM
     Indication: PRODUCT USED FOR UNKNOWN INDICATION
     Dosage: 7.5 MILLIGRAM, TOTAL
     Route: 048
     Dates: start: 20180702, end: 20180702

REACTIONS (4)
  - Suicide attempt [Unknown]
  - Disorientation [Recovered/Resolved]
  - Toxicity to various agents [Recovered/Resolved]
  - Vomiting [Recovered/Resolved]

NARRATIVE: CASE EVENT DATE: 20180702
